FAERS Safety Report 5632816-8 (Version None)
Quarter: 2008Q1

REPORT INFORMATION
  Report Type: 
  Country: None (occurrence: None)
  Receive Date: 20080221
  Receipt Date: 20070112
  Transmission Date: 20080703
  Serious: Yes (Hospitalization)
  Sender: FDA-Public Use
  Company Number: A0635183A

PATIENT
  Age: 75 Year
  Sex: Female

DRUGS (1)
  1. ALKERAN [Suspect]
     Dosage: 2MG FIVE TIMES PER DAY
     Route: 048

REACTIONS (2)
  - NEUTROPENIA [None]
  - PLATELET COUNT DECREASED [None]
